FAERS Safety Report 7645219-1 (Version None)
Quarter: 2011Q3

REPORT INFORMATION
  Report Type: 
  Country: None (occurrence: None)
  Receive Date: 20110729
  Receipt Date: 20110725
  Transmission Date: 20111222
  Serious: Yes (Death, Other)
  Sender: FDA-Public Use
  Company Number: FR-CELGENEUS-056-50794-11040273

PATIENT
  Sex: Male
  Weight: 68 kg

DRUGS (12)
  1. PREDNISONE [Concomitant]
     Indication: BRONCHOPNEUMOPATHY
     Dosage: 30 MILLIGRAM
     Route: 065
     Dates: start: 20110213, end: 20110220
  2. ACETAMINOPHEN [Concomitant]
     Dosage: 3000 MILLIGRAM
     Route: 065
     Dates: start: 20110309
  3. OFLOXACIN [Concomitant]
     Indication: PROSTATITIS
     Dosage: 200 MILLIGRAM
     Route: 065
     Dates: start: 20110101
  4. VIDAZA [Suspect]
     Dosage: 75 MILLIGRAM
     Route: 058
     Dates: start: 20110301
  5. DIFRAREL [Concomitant]
     Dosage: 100 MILLIGRAM
     Route: 065
  6. VIDAZA [Suspect]
     Dosage: 75 MILLIGRAM
     Route: 058
     Dates: start: 20110307, end: 20110311
  7. OROKEN [Concomitant]
     Indication: BRONCHOPNEUMOPATHY
     Dosage: 400 MILLIGRAM
     Route: 065
     Dates: start: 20110221, end: 20110228
  8. VIDAZA [Suspect]
     Indication: ACUTE MYELOID LEUKAEMIA
     Dosage: 75 MILLIGRAM
     Route: 058
     Dates: start: 20101201
  9. VIDAZA [Suspect]
     Dosage: 75 MILLIGRAM
     Route: 058
     Dates: start: 20110101
  10. ALLOPURINOL [Concomitant]
     Route: 065
  11. LAMALINE [Concomitant]
     Route: 065
  12. AUGMENTIN '125' [Concomitant]
     Indication: BRONCHOPNEUMOPATHY
     Dosage: 3 GRAM
     Route: 065
     Dates: start: 20110213, end: 20110219

REACTIONS (8)
  - ACUTE MYELOID LEUKAEMIA [None]
  - THROMBOCYTOPENIA [None]
  - SEPTIC SHOCK [None]
  - CELLULITIS [None]
  - HAEMATOMA INFECTION [None]
  - SPONTANEOUS HAEMATOMA [None]
  - ABSCESS LIMB [None]
  - MYOSITIS [None]
